FAERS Safety Report 19771771 (Version 2)
Quarter: 2021Q4

REPORT INFORMATION
  Report Type: Report from Study
  Country: ES (occurrence: ES)
  Receive Date: 20210831
  Receipt Date: 20211130
  Transmission Date: 20220304
  Serious: Yes (Hospitalization, Other)
  Sender: FDA-Public Use
  Company Number: ES-TAKEDA-2021TUS052271

PATIENT
  Age: 2 Year
  Sex: Male

DRUGS (8)
  1. TEDUGLUTIDE [Suspect]
     Active Substance: TEDUGLUTIDE
     Indication: Short-bowel syndrome
     Dosage: 0.25 MILLIGRAM, QD
     Route: 065
     Dates: start: 20200804
  2. TEDUGLUTIDE [Suspect]
     Active Substance: TEDUGLUTIDE
     Indication: Short-bowel syndrome
     Dosage: 0.25 MILLIGRAM, QD
     Route: 065
     Dates: start: 20200804
  3. TEDUGLUTIDE [Suspect]
     Active Substance: TEDUGLUTIDE
     Indication: Short-bowel syndrome
     Dosage: 0.25 MILLIGRAM, QD
     Route: 065
     Dates: start: 20200804
  4. TEDUGLUTIDE [Suspect]
     Active Substance: TEDUGLUTIDE
     Indication: Short-bowel syndrome
     Dosage: 0.25 MILLIGRAM, QD
     Route: 065
     Dates: start: 20200804
  5. AMLODIPINE BESYLATE [Concomitant]
     Active Substance: AMLODIPINE BESYLATE
     Dosage: 0.6 MILLIGRAM, BID
     Route: 048
     Dates: start: 2019
  6. BEMIPARIN SODIUM [Concomitant]
     Active Substance: BEMIPARIN SODIUM
     Dosage: 625 INTERNATIONAL UNIT, QD
     Route: 058
     Dates: start: 20191112, end: 20210511
  7. BEMIPARIN SODIUM [Concomitant]
     Active Substance: BEMIPARIN SODIUM
     Dosage: 312.5 INTERNATIONAL UNIT, QD
     Route: 058
     Dates: start: 20200511
  8. LOPERAMIDE HYDROCHLORIDE [Concomitant]
     Active Substance: LOPERAMIDE HYDROCHLORIDE
     Dosage: 0.14 MILLIGRAM, TID
     Route: 048
     Dates: start: 20201007

REACTIONS (2)
  - Unintentional medical device removal [Unknown]
  - No adverse event [Unknown]

NARRATIVE: CASE EVENT DATE: 20201201
